FAERS Safety Report 17245546 (Version 2)
Quarter: 2020Q1

REPORT INFORMATION
  Report Type: Spontaneous
  Country: IT (occurrence: IT)
  Receive Date: 20200108
  Receipt Date: 20200327
  Transmission Date: 20200409
  Serious: Yes (Other)
  Sender: FDA-Public Use
  Company Number: IT-SUN PHARMACEUTICAL INDUSTRIES LTD-2019RR-232732

PATIENT
  Age: 67 Year
  Sex: Male
  Weight: 52 kg

DRUGS (1)
  1. CIPROFLOXACIN. [Suspect]
     Active Substance: CIPROFLOXACIN
     Indication: CULTURE URINE POSITIVE
     Dosage: 500 MILLIGRAM DAILY
     Route: 048
     Dates: start: 20191129, end: 20191204

REACTIONS (2)
  - Blood urine [Recovered/Resolved]
  - Haemorrhage urinary tract [Recovered/Resolved]

NARRATIVE: CASE EVENT DATE: 20191205
